FAERS Safety Report 8100228 (Version 4)
Quarter: 2014Q2

REPORT INFORMATION
  Report Type: Report from Study
  Country: KE (occurrence: KE)
  Receive Date: 20110822
  Receipt Date: 20140618
  Transmission Date: 20141212
  Serious: Yes (Hospitalization)
  Sender: FDA-Public Use
  Company Number: KE-GLAXOSMITHKLINE-R0015948F

PATIENT
  Age: 10 Month
  Sex: Male

DRUGS (11)
  1. MENJUGATE [Suspect]
     Route: 030
     Dates: start: 20101111, end: 20101111
  2. TRITANRIX-HEPB/HIB [Suspect]
     Route: 030
     Dates: start: 20101111, end: 20101111
  3. POLIO SABIN [Suspect]
     Route: 048
     Dates: start: 20101111, end: 20101111
  4. ABACAVIR [Suspect]
     Indication: HIV INFECTION
     Dosage: 8ML PER DAY
     Route: 048
     Dates: start: 20110318
  5. LAMIVUDINE-HIV [Suspect]
     Indication: HIV INFECTION
     Dosage: 8ML PER DAY
     Route: 048
     Dates: start: 20110318
  6. EFAVIRENZ [Suspect]
     Indication: HIV INFECTION
     Dosage: 100MG PER DAY
     Route: 048
     Dates: start: 20110602, end: 20110608
  7. COTRIMOXAZOLE [Concomitant]
     Indication: PROPHYLAXIS
     Dosage: 5ML PER DAY
     Route: 048
     Dates: start: 20101201
  8. RIFAMPICIN [Concomitant]
     Indication: TUBERCULOSIS
     Dosage: 60MG PER DAY
     Route: 048
     Dates: start: 20110602
  9. ISONIAZID [Concomitant]
     Indication: TUBERCULOSIS
     Dosage: 30MG PER DAY
     Route: 048
     Dates: start: 20110602
  10. PYRAZINAMIDE [Concomitant]
     Indication: TUBERCULOSIS
     Dosage: 150MG PER DAY
     Route: 048
     Dates: start: 20110602
  11. ZIDOVUDINE [Concomitant]
     Indication: HIV INFECTION
     Dosage: 18ML PER DAY
     Route: 048
     Dates: start: 20110614

REACTIONS (1)
  - Immune reconstitution inflammatory syndrome [Recovered/Resolved]
